FAERS Safety Report 7786552-2 (Version None)
Quarter: 2011Q3

REPORT INFORMATION
  Report Type: 
  Country: None (occurrence: None)
  Receive Date: 20110929
  Receipt Date: 20110913
  Transmission Date: 20111222
  Serious: Yes (Death)
  Sender: FDA-Public Use
  Company Number: JP-GLAXOSMITHKLINE-B0747931A

PATIENT
  Age: 57 Year
  Sex: Female

DRUGS (1)
  1. HYCAMTIN [Suspect]
     Indication: OVARIAN CANCER RECURRENT
     Dosage: 2.5MG PER DAY
     Route: 042
     Dates: start: 20110614, end: 20110616

REACTIONS (2)
  - CONDITION AGGRAVATED [None]
  - BONE MARROW FAILURE [None]
